FAERS Safety Report 8453102-7 (Version None)
Quarter: 2012Q2

REPORT INFORMATION
  Report Type: 
  Country: None (occurrence: None)
  Receive Date: 20120620
  Receipt Date: 20120507
  Transmission Date: 20120825
  Serious: No
  Sender: FDA-Public Use
  Company Number: US-VERTEX PHARMACEUTICALS INC.-AE-2012-006625

PATIENT
  Sex: Female
  Weight: 57.658 kg

DRUGS (4)
  1. PEGASYS [Concomitant]
     Indication: HEPATITIS C
  2. RIBAVIRIN [Concomitant]
     Indication: HEPATITIS C
  3. INCIVEK [Suspect]
     Indication: HEPATITIS C
     Route: 048
     Dates: start: 20120401
  4. DILAUDID [Concomitant]

REACTIONS (9)
  - FATIGUE [None]
  - FEELING JITTERY [None]
  - DYSKINESIA [None]
  - GAIT DISTURBANCE [None]
  - ARTHRALGIA [None]
  - INSOMNIA [None]
  - PAIN IN EXTREMITY [None]
  - TREMOR [None]
  - DECREASED APPETITE [None]
